FAERS Safety Report 4634580-8 (Version None)
Quarter: 2005Q2

REPORT INFORMATION
  Report Type: 
  Country: None (occurrence: None)
  Receive Date: 20050411
  Receipt Date: 20050401
  Transmission Date: 20051028
  Serious: Yes (Hospitalization)
  Sender: FDA-Public Use
  Company Number: 2005-04-0026

PATIENT
  Age: 44 Year
  Sex: Male

DRUGS (1)
  1. TEMODAL [Suspect]
     Indication: BRAIN NEOPLASM MALIGNANT
     Dosage: 200 MG/M^2 ORAL; 6 CYCLE (S)
     Route: 048

REACTIONS (1)
  - MYOCARDIAL INFARCTION [None]
